FAERS Safety Report 5495275-4 (Version None)
Quarter: 2007Q4

REPORT INFORMATION
  Report Type: 
  Country: None (occurrence: None)
  Receive Date: 20071024
  Receipt Date: 20071012
  Transmission Date: 20080405
  Serious: Yes (Death, Hospitalization, Other)
  Sender: FDA-Public Use
  Company Number: JP-PFIZER INC-2007074176

PATIENT
  Sex: Male
  Weight: 57 kg

DRUGS (12)
  1. ZYVOX [Suspect]
     Indication: PNEUMONIA STAPHYLOCOCCAL
     Route: 042
     Dates: start: 20070822, end: 20070827
  2. MEROPEN [Suspect]
     Indication: PNEUMONIA
     Route: 042
     Dates: start: 20070816, end: 20070827
  3. OMEPRAL [Concomitant]
     Dates: start: 20070810, end: 20070914
  4. VITAMINS [Concomitant]
  5. FIRSTCIN [Concomitant]
     Route: 042
     Dates: start: 20070808, end: 20070821
  6. CLINDAMYCIN PHOSPHATE [Concomitant]
     Dates: start: 20070805, end: 20070821
  7. NEOPHYLLIN [Concomitant]
     Dates: start: 20070822, end: 20070914
  8. HUMULIN 70/30 [Concomitant]
  9. AMINOTRIPA 1 [Concomitant]
     Route: 042
  10. VITAMIN CAP [Concomitant]
     Route: 042
  11. ELEMENMIC [Concomitant]
     Route: 042
  12. SODIUM CHLORIDE [Concomitant]
     Route: 042

REACTIONS (2)
  - HYPONATRAEMIA [None]
  - RESPIRATORY FAILURE [None]
